FAERS Safety Report 12524166 (Version 1)
Quarter: 2016Q3

REPORT INFORMATION
  Report Type: Spontaneous
  Country: IT (occurrence: IT)
  Receive Date: 20160704
  Receipt Date: 20160704
  Transmission Date: 20161109
  Serious: Yes (Hospitalization, Other)
  Sender: FDA-Public Use
  Company Number: IT-BRISTOL-MYERS SQUIBB COMPANY-BMS-2016-050594

PATIENT
  Age: 71 Year
  Sex: Male

DRUGS (1)
  1. COUMADIN [Suspect]
     Active Substance: WARFARIN SODIUM
     Indication: HEART VALVE REPLACEMENT
     Dosage: 5 MG, PRN
     Route: 048
     Dates: start: 20160101

REACTIONS (5)
  - Fall [Unknown]
  - Pneumocephalus [Unknown]
  - Epistaxis [Unknown]
  - Head injury [Unknown]
  - Dizziness [Unknown]

NARRATIVE: CASE EVENT DATE: 20160519
